FAERS Safety Report 6040513-2 (Version None)
Quarter: 2009Q1

REPORT INFORMATION
  Report Type: 
  Country: None (occurrence: None)
  Receive Date: 20090116
  Receipt Date: 20080326
  Transmission Date: 20090719
  Serious: Yes (Hospitalization, Other)
  Sender: FDA-Public Use
  Company Number: US-BRISTOL-MYERS SQUIBB COMPANY-14127435

PATIENT
  Age: 17 Year
  Sex: Female
  Weight: 166 kg

DRUGS (21)
  1. ABILIFY [Suspect]
  2. PROZAC [Concomitant]
  3. CELEXA [Concomitant]
  4. METFORMIN [Concomitant]
  5. LIPITOR [Concomitant]
  6. STARLIX [Concomitant]
  7. HYDROCHLOROTHIAZIDE [Concomitant]
  8. HYDROXYZINE [Concomitant]
  9. NAPROXEN [Concomitant]
  10. MULTI-VITAMINS [Concomitant]
  11. PHENAZOPYRIDINE HCL TAB [Concomitant]
  12. MIRALAX [Concomitant]
  13. NORVASC [Concomitant]
  14. PREVACID [Concomitant]
  15. HUMALOG [Concomitant]
     Dosage: HUMALOG 75/25: 70 UNITS(MORNING) HUMALOG LISPRO: 40 UNITS(EVENING) 1 DF = 70 UNITS + 40UNITS
  16. CATAPRES-TTS-1 [Concomitant]
     Dosage: 1 DOSAGE FORM = 1 PATCH
  17. RHINOCORT [Concomitant]
     Dosage: ONE SPRAY TO EACH NOSTRIL DAILY.
  18. XOPENEX [Concomitant]
     Dosage: FREQUENCY: EVERY 4-6 HOURSE WHEN NECESSARY.
  19. ALBUTEROL [Concomitant]
  20. XANAX [Concomitant]
     Dosage: FREQUENCY: EVERY FOUR HOURS WHEN NECESSARY.
  21. ENULOSE [Concomitant]

REACTIONS (6)
  - AGITATION [None]
  - BLOOD GLUCOSE ABNORMAL [None]
  - COLD SWEAT [None]
  - HYPERHIDROSIS [None]
  - HYPERTENSION [None]
  - SUICIDAL IDEATION [None]
